FAERS Safety Report 7363143-9 (Version None)
Quarter: 2011Q1

REPORT INFORMATION
  Report Type: 
  Country: None (occurrence: None)
  Receive Date: 20110321
  Receipt Date: 20100909
  Transmission Date: 20110831
  Serious: Yes (Hospitalization)
  Sender: FDA-Public Use
  Company Number: US-BAYER-200942472NA

PATIENT
  Sex: Female
  Weight: 68.182 kg

DRUGS (15)
  1. CYMBALTA [Concomitant]
     Indication: STRESS
     Dosage: 60 MG/D, UNK
     Route: 048
     Dates: start: 20020501, end: 20080601
  2. HYDROCODONE BITARTRATE [Concomitant]
     Indication: PAIN
     Route: 065
     Dates: start: 20011105
  3. YASMIN [Suspect]
     Route: 048
     Dates: start: 20040607, end: 20080506
  4. SYNTHROID [Concomitant]
     Dosage: 100 ?G/D, UNK
     Route: 048
     Dates: start: 20060101
  5. NEXIUM [Concomitant]
     Indication: GASTROOESOPHAGEAL REFLUX DISEASE
     Dosage: 40 MG/D, UNK
     Route: 048
     Dates: start: 20030130, end: 20070812
  6. OTHER ANTIDEPRESSANTS [Concomitant]
     Indication: STRESS
     Route: 065
     Dates: start: 20050527, end: 20060823
  7. OXYCODONE [Concomitant]
     Indication: PAIN
     Route: 065
     Dates: start: 20031120, end: 20090314
  8. CELEXA [Concomitant]
     Indication: STRESS
     Route: 065
     Dates: start: 20080101
  9. CALCIUM [Concomitant]
     Route: 065
     Dates: start: 20000101
  10. YAZ [Suspect]
     Route: 048
     Dates: start: 20080710, end: 20090301
  11. IBUPROFEN [Concomitant]
     Route: 065
     Dates: start: 20071228
  12. CELEBREX [Concomitant]
     Route: 065
     Dates: start: 20080211
  13. NAPROSYN [Concomitant]
     Route: 065
     Dates: start: 20040820
  14. GUAIFENESIN [Concomitant]
     Indication: PRODUCTIVE COUGH
     Route: 065
     Dates: start: 20000424, end: 20080501
  15. ONE-A-DAY [Concomitant]
     Indication: STRESS
     Route: 065
     Dates: start: 20000101

REACTIONS (3)
  - DYSPNOEA [None]
  - CHEST PAIN [None]
  - PULMONARY EMBOLISM [None]
